FAERS Safety Report 4801288-5 (Version None)
Quarter: 2005Q4

REPORT INFORMATION
  Report Type: 
  Country: None (occurrence: None)
  Receive Date: 20051011
  Receipt Date: 20050922
  Transmission Date: 20060501
  Serious: Yes (Death, Hospitalization)
  Sender: FDA-Public Use
  Company Number: WAES 0509USA04968

PATIENT
  Age: 41 Year
  Sex: Male

DRUGS (8)
  1. DECADRON [Suspect]
     Indication: ANTIINFLAMMATORY THERAPY
     Dosage: SEE IMAGE, PO
     Route: 048
     Dates: start: 20050608
  2. DEXAMETHASONE SODIUM PHOSPHATE [Suspect]
     Indication: ANTIINFLAMMATORY THERAPY
     Dosage: ANTIINFLAMMATORY THERAPY, PO
     Route: 048
     Dates: start: 20050722
  3. TEMODAL [Suspect]
     Indication: ASTROCYTOMA
     Dosage: 150 MG, PO
     Route: 048
     Dates: start: 20041203, end: 20050629
  4. FRAGMIN [Concomitant]
  5. TRANXILIUM [Concomitant]
  6. TRIPTIZOL [Concomitant]
  7. CARBAMAZEPINE [Concomitant]
  8. OMEPRAZOLE [Concomitant]

REACTIONS (6)
  - ASTROCYTOMA [None]
  - CONFUSIONAL STATE [None]
  - DISEASE PROGRESSION [None]
  - PNEUMOCYSTIS JIROVECI PNEUMONIA [None]
  - RESPIRATORY FAILURE [None]
  - TREATMENT NONCOMPLIANCE [None]
